FAERS Safety Report 5163232-3 (Version None)
Quarter: 2006Q4

REPORT INFORMATION
  Report Type: 
  Country: None (occurrence: None)
  Receive Date: 20061204
  Receipt Date: 20060831
  Transmission Date: 20070319
  Serious: Yes (Death, Hospitalization)
  Sender: FDA-Public Use
  Company Number: US-ELI_LILLY_AND_COMPANY-US200608006948

PATIENT
  Age: 28 Year
  Sex: Male
  Weight: 118 kg

DRUGS (7)
  1. DIVALPROEX SODIUM [Concomitant]
     Dates: start: 19990201, end: 20040906
  2. CITALOPRAM HYDROBROMIDE [Concomitant]
     Dates: start: 20000210, end: 20040906
  3. MIRTAZAPINE [Concomitant]
     Dates: start: 20010604, end: 20040906
  4. SERTRALINE [Concomitant]
     Dates: start: 20000101
  5. ATENOLOL [Concomitant]
     Dates: start: 20020422, end: 20040906
  6. PREDNISOLONE [Concomitant]
     Dates: start: 20030317
  7. ZYPREXA [Suspect]
     Dosage: 20 MG, UNK
     Dates: start: 19990219, end: 20040906

REACTIONS (10)
  - BLOOD CHOLESTEROL ABNORMAL [None]
  - BLOOD TRIGLYCERIDES INCREASED [None]
  - DEATH [None]
  - DIABETES MELLITUS [None]
  - HYPERTENSION [None]
  - KETOACIDOSIS [None]
  - METABOLIC DISORDER [None]
  - OBESITY [None]
  - PANCREATITIS [None]
  - PANCREATITIS ACUTE [None]
